FAERS Safety Report 6398496-1 (Version None)
Quarter: 2009Q4

REPORT INFORMATION
  Report Type: 
  Country: None (occurrence: None)
  Receive Date: 20091013
  Receipt Date: 20091007
  Transmission Date: 20100525
  Serious: Yes (Hospitalization)
  Sender: FDA-Public Use
  Company Number: B0597571A

PATIENT
  Sex: Male

DRUGS (7)
  1. DILATREND [Suspect]
     Indication: DRUG USE FOR UNKNOWN INDICATION
     Dosage: 12.5MG PER DAY
     Route: 048
     Dates: start: 20090803
  2. CORDARONE [Suspect]
     Indication: DRUG USE FOR UNKNOWN INDICATION
     Dosage: 200MG EVERY 3 WEEKS
     Route: 048
     Dates: start: 20090803
  3. ASPIRIN [Concomitant]
     Route: 065
  4. DIOVAN HCT [Concomitant]
     Route: 065
  5. MEVALOTIN [Concomitant]
     Route: 065
  6. ARICEPT [Concomitant]
     Route: 065
  7. TAMSULOSINE [Concomitant]
     Route: 065

REACTIONS (3)
  - BRADYCARDIA [None]
  - DRUG INTERACTION [None]
  - PRESYNCOPE [None]
